FAERS Safety Report 21397297 (Version 1)
Quarter: 2022Q3

REPORT INFORMATION
  Report Type: Spontaneous
  Country: CA (occurrence: CA)
  Receive Date: 20220930
  Receipt Date: 20220930
  Transmission Date: 20221026
  Serious: Yes (Hospitalization)
  Sender: FDA-Public Use
  Company Number: CA-NOVARTISPH-NVSC2022CA221139

PATIENT
  Age: 11 Year
  Sex: Female

DRUGS (2)
  1. CARBAMAZEPINE [Suspect]
     Active Substance: CARBAMAZEPINE
     Indication: Temporal lobe epilepsy
     Dosage: 200 MG, BID
     Route: 065
  2. CLOBAZAM [Concomitant]
     Active Substance: CLOBAZAM
     Indication: Seizure prophylaxis
     Dosage: UNK
     Route: 065

REACTIONS (3)
  - Drug reaction with eosinophilia and systemic symptoms [Recovered/Resolved]
  - Drug-induced liver injury [Recovered/Resolved]
  - Haemophagocytic lymphohistiocytosis [Recovered/Resolved]
